FAERS Safety Report 5215536-3 (Version None)
Quarter: 2007Q1

REPORT INFORMATION
  Report Type: 
  Country: None (occurrence: None)
  Receive Date: 20070117
  Receipt Date: 20061228
  Transmission Date: 20070707
  Serious: Yes (Death, Hospitalization)
  Sender: FDA-Public Use
  Company Number: 8020544

PATIENT
  Age: 86 Year
  Sex: Male
  Weight: 30 kg

DRUGS (6)
  1. LEVETIRACETAM [Suspect]
     Indication: CONVULSION
     Dosage: 500 MG THREE IV
     Route: 042
  2. LEVETIRACETAM [Suspect]
     Indication: CONVULSION
     Dosage: 1000 MG 2/D PO
     Route: 048
     Dates: start: 20061101, end: 20061106
  3. DIAZEPAM [Suspect]
     Indication: CONVULSION
     Dosage: 20 MG ONCE
  4. RIVOTRIL [Concomitant]
  5. CEFTRIAXONE [Concomitant]
  6. ACETAMINOPHEN [Concomitant]

REACTIONS (2)
  - PNEUMONIA [None]
  - RESPIRATORY DISTRESS [None]
